FAERS Safety Report 24971889 (Version 1)
Quarter: 2025Q1

REPORT INFORMATION
  Report Type: Report from Study
  Country: US (occurrence: None)
  Receive Date: 20250214
  Receipt Date: 20250214
  Transmission Date: 20250409
  Serious: No
  Sender: ALEXION PHARMACEUTICALS
  Company Number: AF-AstraZeneca-2013SE55162

PATIENT
  Age: 65 Year
  Weight: 113.4 kg

DRUGS (1)
  1. NEXIUM [Suspect]
     Active Substance: ESOMEPRAZOLE MAGNESIUM
     Indication: Dyspepsia
     Dosage: 40 MILLIGRAM, QD

REACTIONS (4)
  - Neck pain [Not Recovered/Not Resolved]
  - Fatigue [Unknown]
  - Hypoacusis [Unknown]
  - Product dose omission issue [Unknown]
